FAERS Safety Report 8532890-5 (Version None)
Quarter: 2012Q3

REPORT INFORMATION
  Report Type: 
  Country: None (occurrence: None)
  Receive Date: 20120724
  Receipt Date: 20120719
  Transmission Date: 20120928
  Serious: Yes (Life-Threatening)
  Sender: FDA-Public Use
  Company Number: JP-ASTELLAS-2012JP001656

PATIENT
  Sex: Female
  Weight: 61.5 kg

DRUGS (7)
  1. VESICARE [Suspect]
     Indication: HYPERTONIC BLADDER
     Dosage: 5 MG, UID/QD
     Route: 048
     Dates: start: 20111115, end: 20120222
  2. URSO 250 [Concomitant]
     Indication: AUTOIMMUNE HEPATITIS
     Dosage: 100 MG, BID
     Route: 048
     Dates: start: 20080724, end: 20090413
  3. LACTOFERRIN [Concomitant]
     Dosage: UNK
     Route: 065
     Dates: end: 20120228
  4. VISRRAT [Concomitant]
     Dosage: UNK
     Route: 065
     Dates: end: 20120228
  5. URSO 250 [Concomitant]
     Dosage: 100 MG, TID
     Dates: start: 20090414, end: 20120222
  6. SALIVEHT TEIJIN [Concomitant]
     Dosage: UNK
     Route: 055
     Dates: start: 20120118
  7. IBRUPROFEN [Concomitant]
     Dosage: UNK
     Route: 065
     Dates: end: 20120228

REACTIONS (8)
  - BLOOD LACTATE DEHYDROGENASE INCREASED [None]
  - GAMMA-GLUTAMYLTRANSFERASE INCREASED [None]
  - CONDITION AGGRAVATED [None]
  - ASPARTATE AMINOTRANSFERASE INCREASED [None]
  - AUTOIMMUNE HEPATITIS [None]
  - HEPATIC FUNCTION ABNORMAL [None]
  - BLOOD ALKALINE PHOSPHATASE INCREASED [None]
  - ALANINE AMINOTRANSFERASE INCREASED [None]
